FAERS Safety Report 11217266 (Version 1)
Quarter: 2015Q2

REPORT INFORMATION
  Report Type: Spontaneous
  Country: KE (occurrence: KE)
  Receive Date: 20150625
  Receipt Date: 20150625
  Transmission Date: 20150821
  Serious: Yes (Other)
  Sender: FDA-Public Use
  Company Number: KE-ALVOGEN-2015AL002539

PATIENT
  Age: 60 Year
  Sex: Male

DRUGS (2)
  1. LISINOPRIL AND HYDROCHLOROTHIAZIDE [Suspect]
     Active Substance: HYDROCHLOROTHIAZIDE\LISINOPRIL
     Indication: HYPERTENSION
     Route: 048
     Dates: start: 20150525
  2. GLUCOPHAGE [Concomitant]
     Active Substance: METFORMIN HYDROCHLORIDE
     Indication: DIABETES MELLITUS
     Route: 048

REACTIONS (4)
  - Heart rate increased [Recovering/Resolving]
  - Blood pressure increased [Recovering/Resolving]
  - Headache [Recovering/Resolving]
  - Drug ineffective [Recovering/Resolving]

NARRATIVE: CASE EVENT DATE: 20150528
